FAERS Safety Report 6743581-5 (Version None)
Quarter: 2010Q2

REPORT INFORMATION
  Report Type: 
  Country: None (occurrence: None)
  Receive Date: 20100527
  Receipt Date: 20100517
  Transmission Date: 20101027
  Serious: Yes (Hospitalization)
  Sender: FDA-Public Use
  Company Number: FR-WYE-H15189110

PATIENT
  Age: 77 Year
  Sex: Female

DRUGS (10)
  1. CORDARONE [Suspect]
     Dosage: 200 MG TABLET, DOSE UNSPECIFIED
     Route: 048
     Dates: end: 20100419
  2. RAMIPRIL [Concomitant]
     Dosage: UNSPECIFIED
     Dates: end: 20100419
  3. AMLOR [Concomitant]
     Dosage: UNSPECIFIED
     Dates: end: 20100419
  4. VOLTAREN [Concomitant]
     Dosage: UNSPECIFIED AS NEEDED
     Dates: end: 20100419
  5. METFORMIN HYDROCHLORIDE [Concomitant]
     Dosage: UNSPECIFIED
     Dates: end: 20100419
  6. PIOGLITAZONE HYDROCHLORIDE [Concomitant]
     Dosage: UNSPECIFIED
     Dates: end: 20100419
  7. COLCHIMAX [Concomitant]
     Dosage: UNSPECIFIED
     Dates: end: 20100419
  8. DAFALGAN [Concomitant]
     Dosage: UNSPECIFIED AS NEEDED
     Dates: end: 20100419
  9. ALLOPURINOL [Concomitant]
     Dosage: UNSPECIFIED
     Dates: end: 20100419
  10. PREVISCAN [Concomitant]
     Dosage: UNSPECIFIED
     Dates: end: 20100419

REACTIONS (4)
  - INTERSTITIAL LUNG DISEASE [None]
  - PNEUMOCYSTIS JIROVECI PNEUMONIA [None]
  - PSEUDOMONAS INFECTION [None]
  - STAPHYLOCOCCAL INFECTION [None]
